FAERS Safety Report 9082126 (Version 2)
Quarter: 2013Q1

REPORT INFORMATION
  Report Type: Spontaneous
  Country: CO (occurrence: CO)
  Receive Date: 20130131
  Receipt Date: 20130220
  Transmission Date: 20140127
  Serious: Yes (Other)
  Sender: FDA-Public Use
  Company Number: CO-AMGEN-COLSP2013006614

PATIENT
  Age: 61 Year
  Sex: Female

DRUGS (2)
  1. ENBREL [Suspect]
     Indication: PSORIASIS
     Dosage: 50 MG, WEEKLY
     Route: 058
     Dates: start: 201112, end: 201203
  2. SALBUTAMOL [Concomitant]
     Dosage: UNK
     Dates: start: 201204

REACTIONS (3)
  - Asthma [Not Recovered/Not Resolved]
  - Dysphonia [Recovering/Resolving]
  - Dyspnoea [Recovering/Resolving]
